FAERS Safety Report 8366854-1 (Version None)
Quarter: 2012Q2

REPORT INFORMATION
  Report Type: 
  Country: None (occurrence: None)
  Receive Date: 20120517
  Receipt Date: 20120507
  Transmission Date: 20120825
  Serious: Yes (Hospitalization, Other)
  Sender: FDA-Public Use
  Company Number: JP-ROCHE-685603

PATIENT
  Sex: Female
  Weight: 69 kg

DRUGS (45)
  1. PREDNISOLONE [Suspect]
     Route: 048
     Dates: start: 20090901, end: 20090914
  2. CYCLOSPORINE [Suspect]
     Route: 042
     Dates: start: 20100601, end: 20100606
  3. SOLU-CORTEF [Concomitant]
     Route: 042
     Dates: start: 20090928, end: 20090928
  4. PREDNISOLONE [Suspect]
     Route: 048
     Dates: start: 20091029, end: 20091110
  5. PREDNISOLONE [Suspect]
     Route: 048
     Dates: start: 20091126, end: 20091208
  6. PREDNISOLONE [Suspect]
     Route: 048
     Dates: start: 20100317, end: 20100506
  7. ACTEMRA [Suspect]
     Route: 041
     Dates: start: 20100506, end: 20100506
  8. PREDNISOLONE [Suspect]
     Route: 048
     Dates: start: 20090721, end: 20090724
  9. PREDNISOLONE [Suspect]
     Route: 048
     Dates: start: 20091014, end: 20091028
  10. PREDNISOLONE [Suspect]
     Route: 048
     Dates: start: 20091111, end: 20091125
  11. PREDNISOLONE [Suspect]
     Route: 048
     Dates: start: 20091209, end: 20091222
  12. PREDNISOLONE [Suspect]
     Route: 048
     Dates: start: 20100120, end: 20100217
  13. PREDNISOLONE [Suspect]
     Route: 048
     Dates: start: 20100507, end: 20100601
  14. DEXAMETHASONE [Suspect]
     Indication: JUVENILE ARTHRITIS
     Dosage: DRUG NAME: LIMETHASON
     Route: 041
     Dates: start: 20100601, end: 20100603
  15. ACTEMRA [Suspect]
     Route: 041
     Dates: start: 20100520, end: 20100601
  16. PREDNISOLONE [Suspect]
     Indication: JUVENILE ARTHRITIS
     Route: 048
  17. PREDNISOLONE [Suspect]
     Route: 048
     Dates: start: 20090804, end: 20090814
  18. PREDNISOLONE [Suspect]
     Route: 048
     Dates: start: 20090815, end: 20090817
  19. PREDNISOLONE [Suspect]
     Route: 048
     Dates: start: 20091223, end: 20100119
  20. PREDNISOLONE [Suspect]
     Route: 048
     Dates: start: 20100218, end: 20100316
  21. FAMOTIDINE [Concomitant]
     Indication: PROPHYLAXIS AGAINST GASTROINTESTINAL ULCER
     Route: 048
  22. ACTEMRA [Suspect]
     Route: 041
  23. PREDNISOLONE [Suspect]
     Route: 048
     Dates: start: 20090703, end: 20090713
  24. ONEALFA [Concomitant]
     Indication: OSTEOPOROSIS PROPHYLAXIS
     Route: 048
  25. ACTEMRA [Suspect]
     Route: 041
     Dates: start: 20100614, end: 20100629
  26. ACTEMRA [Suspect]
     Route: 041
     Dates: start: 20100715, end: 20110101
  27. PREDNISOLONE [Suspect]
     Route: 048
     Dates: start: 20090818, end: 20090831
  28. PREDNISOLONE [Suspect]
     Route: 048
     Dates: start: 20100610, end: 20100715
  29. CYCLOSPORINE [Suspect]
     Route: 048
  30. CYCLOSPORINE [Suspect]
     Route: 048
     Dates: start: 20090818, end: 20090928
  31. NORVASC [Concomitant]
     Indication: HYPERTENSION
     Route: 048
     Dates: start: 20090719, end: 20090802
  32. NORVASC [Concomitant]
     Route: 048
  33. SOLU-CORTEF [Concomitant]
     Route: 042
     Dates: start: 20090914, end: 20090914
  34. PREDNISOLONE [Suspect]
     Route: 048
     Dates: start: 20090929, end: 20091013
  35. PREDNISOLONE [Suspect]
     Route: 048
  36. CYCLOSPORINE [Suspect]
     Indication: JUVENILE ARTHRITIS
     Dosage: FORM: INJECTIONROUTE: INTRAVENOUS (NOT OTHERWISE SPECIFIED)
     Route: 042
     Dates: start: 20090726, end: 20090808
  37. LISINOPRIL [Concomitant]
     Route: 048
  38. ACTEMRA [Suspect]
     Indication: JUVENILE ARTHRITIS
     Route: 041
     Dates: start: 20090817, end: 20090831
  39. ACTEMRA [Suspect]
     Route: 041
     Dates: start: 20090914, end: 20090914
  40. ACTEMRA [Suspect]
     Route: 041
     Dates: start: 20090928, end: 20100414
  41. PREDNISOLONE [Suspect]
     Route: 048
     Dates: start: 20090915, end: 20090928
  42. PREDNISOLONE [Suspect]
     Route: 048
     Dates: start: 20100716, end: 20100813
  43. NORVASC [Concomitant]
     Route: 048
     Dates: start: 20090803, end: 20091110
  44. LISINOPRIL [Concomitant]
     Indication: HYPERTENSION
     Route: 048
     Dates: start: 20080101, end: 20090702
  45. ATARAX [Concomitant]
     Route: 042
     Dates: start: 20090914, end: 20090914

REACTIONS (5)
  - SUBCUTANEOUS ABSCESS [None]
  - THERMAL BURN [None]
  - HYPERTENSION [None]
  - HISTIOCYTOSIS HAEMATOPHAGIC [None]
  - IMPAIRED HEALING [None]
